FAERS Safety Report 9009693 (Version 1)
Quarter: 2013Q1

REPORT INFORMATION
  Report Type: Spontaneous
  Country: US (occurrence: US)
  Receive Date: 20130112
  Receipt Date: 20130112
  Transmission Date: 20140127
  Serious: Yes (Hospitalization, Other)
  Sender: FDA-Public Use
  Company Number: US-AMGEN-USASP2013000666

PATIENT
  Age: 62 Year
  Sex: Female

DRUGS (7)
  1. PROLIA [Suspect]
     Indication: OSTEOPOROSIS POSTMENOPAUSAL
     Dosage: UNK UNK, Q6MO
     Dates: start: 201201
  2. METOPROLOL [Concomitant]
  3. FUROSEMIDE [Concomitant]
  4. SIMVASTATIN [Concomitant]
  5. CELEBREX [Concomitant]
  6. FOLIC ACID [Concomitant]
  7. VITAMINS                           /00067501/ [Concomitant]

REACTIONS (8)
  - Haemoglobin abnormal [Unknown]
  - Loss of consciousness [Unknown]
  - Haemolytic anaemia [Unknown]
  - Limb deformity [Unknown]
  - Dyspnoea [Unknown]
  - Cystitis [Unknown]
  - Fatigue [Unknown]
  - Asthenia [Unknown]
